FAERS Safety Report 9745247 (Version 4)
Quarter: 2017Q1

REPORT INFORMATION
  Report Type: Spontaneous
  Country: US (occurrence: US)
  Receive Date: 20131211
  Receipt Date: 20170206
  Transmission Date: 20170429
  Serious: No
  Sender: FDA-Public Use
  Company Number: US-PFIZER INC-2013351478

PATIENT
  Age: 79 Year
  Sex: Female

DRUGS (1)
  1. CELEBREX [Suspect]
     Active Substance: CELECOXIB
     Dosage: UNK
     Dates: end: 2000

REACTIONS (4)
  - Dyspnoea [Unknown]
  - Palpitations [Unknown]
  - Cardiac disorder [Unknown]
  - Drug hypersensitivity [Unknown]
